FAERS Safety Report 11208304 (Version 1)
Quarter: 2015Q2

REPORT INFORMATION
  Report Type: Spontaneous
  Country: US (occurrence: US)
  Receive Date: 20150622
  Receipt Date: 20150622
  Transmission Date: 20150821
  Serious: No
  Sender: FDA-Public Use
  Company Number: US-MPIJNJ-2011-04918

PATIENT

DRUGS (3)
  1. CARBOPLATIN. [Suspect]
     Active Substance: CARBOPLATIN
     Indication: OVARIAN CANCER
     Dosage: UNK
     Dates: start: 20090626, end: 200907
  2. CISPLATIN. [Suspect]
     Active Substance: CISPLATIN
     Indication: OVARIAN CANCER
     Dosage: UNK
     Route: 042
     Dates: end: 201109
  3. VELCADE [Suspect]
     Active Substance: BORTEZOMIB
     Indication: OVARIAN CANCER
     Dosage: 2.6 MG, UNK
     Route: 042
     Dates: start: 20090626, end: 20110912

REACTIONS (4)
  - Pollakiuria [Unknown]
  - Dysuria [Unknown]
  - Ovarian cancer [Unknown]
  - Drug ineffective [Unknown]

NARRATIVE: CASE EVENT DATE: 2011
